FAERS Safety Report 14162478 (Version 1)
Quarter: 2017Q4

REPORT INFORMATION
  Report Type: Spontaneous
  Country: US (occurrence: US)
  Receive Date: 20171106
  Receipt Date: 20171106
  Transmission Date: 20180321
  Serious: Yes (Hospitalization)
  Sender: FDA-Public Use
  Company Number: US-ASTRAZENECA-2017SF11170

PATIENT
  Age: 890 Month
  Sex: Male
  Weight: 82.6 kg

DRUGS (2)
  1. BYDUREON [Suspect]
     Active Substance: EXENATIDE
     Indication: TYPE 2 DIABETES MELLITUS
     Route: 065
     Dates: start: 201701, end: 201708
  2. BYETTA [Suspect]
     Active Substance: EXENATIDE
     Indication: TYPE 2 DIABETES MELLITUS
     Route: 065
     Dates: end: 201701

REACTIONS (3)
  - Cardiac failure congestive [Unknown]
  - Insurance issue [Unknown]
  - Injection site pain [Unknown]

NARRATIVE: CASE EVENT DATE: 201701
